FAERS Safety Report 11747675 (Version 1)
Quarter: 2015Q4

REPORT INFORMATION
  Report Type: Spontaneous
  Country: None (occurrence: BR)
  Receive Date: 20151117
  Receipt Date: 20151117
  Transmission Date: 20160304
  Serious: Yes (Other)
  Sender: FDA-Public Use
  Company Number: BR-MERCK KGAA-1044322

PATIENT

DRUGS (1)
  1. NOVOTHYROX [Suspect]
     Active Substance: LEVOTHYROXINE SODIUM

REACTIONS (5)
  - Oedema [None]
  - Blood thyroid stimulating hormone increased [None]
  - Rash [None]
  - Angioedema [None]
  - Mycotic allergy [None]
